FAERS Safety Report 21252333 (Version 5)
Quarter: 2022Q4

REPORT INFORMATION
  Report Type: Spontaneous
  Country: US (occurrence: US)
  Receive Date: 20220825
  Receipt Date: 20221021
  Transmission Date: 20230113
  Serious: No
  Sender: FDA-Public Use
  Company Number: US-NOVARTISTESTPH-NVSC2022US188172

PATIENT
  Sex: Female

DRUGS (1)
  1. XIIDRA [Suspect]
     Active Substance: LIFITEGRAST
     Indication: Product used for unknown indication
     Dosage: 5 %, BID (1 DROP, 2 EYES)
     Route: 065
     Dates: start: 20220802, end: 20220817

REACTIONS (5)
  - Vision blurred [Unknown]
  - Eye irritation [Unknown]
  - Product container issue [Unknown]
  - Incorrect dose administered by device [Unknown]
  - Product use complaint [Unknown]
